FAERS Safety Report 5068995-3 (Version None)
Quarter: 2006Q3

REPORT INFORMATION
  Report Type: 
  Country: None (occurrence: None)
  Receive Date: 20060802
  Receipt Date: 20060724
  Transmission Date: 20061208
  Serious: Yes (Hospitalization)
  Sender: FDA-Public Use
  Company Number: DE-BOEHRINGER INGELHEIM PHARMACEUTICALS, INC.-2006-DE-03906DE

PATIENT
  Sex: Female

DRUGS (2)
  1. SIFROL [Suspect]
     Indication: PARKINSON'S DISEASE
  2. LEVODOPA [Concomitant]
     Indication: PARKINSON'S DISEASE

REACTIONS (1)
  - MENTAL DISORDER [None]
